FAERS Safety Report 18729078 (Version 3)
Quarter: 2021Q1

REPORT INFORMATION
  Report Type: Report from Study
  Country: PE (occurrence: PE)
  Receive Date: 20210112
  Receipt Date: 20210301
  Transmission Date: 20210419
  Serious: Yes (Other)
  Sender: FDA-Public Use
  Company Number: NVSC2020PE082844

PATIENT
  Age: 6 Year
  Sex: Female

DRUGS (6)
  1. REVOLADE [Suspect]
     Active Substance: ELTROMBOPAG OLAMINE
     Dosage: 25 MG, QD
     Route: 048
     Dates: start: 202012
  2. REVOLADE [Suspect]
     Active Substance: ELTROMBOPAG OLAMINE
     Dosage: 2 DF, QD
     Route: 048
     Dates: start: 202001, end: 202002
  3. REVOLADE [Suspect]
     Active Substance: ELTROMBOPAG OLAMINE
     Dosage: 2 DF, QD
     Route: 048
     Dates: start: 202002
  4. REVOLADE [Suspect]
     Active Substance: ELTROMBOPAG OLAMINE
     Indication: IMMUNE THROMBOCYTOPENIA
     Dosage: 1 DF, QD (50 MG)
     Route: 048
     Dates: start: 20191115, end: 202001
  5. REVOLADE [Suspect]
     Active Substance: ELTROMBOPAG OLAMINE
     Dosage: 25 MG (TOOK 25 MG ONE DAY, 25 MG THE NEXT DAY AND REST TWO DAYS)
     Route: 048
  6. REVOLADE [Suspect]
     Active Substance: ELTROMBOPAG OLAMINE
     Dosage: 25 MG (TOOK 25 MG ONE DAY, 25 MG THE NEXT DAY AND REST ONE DAY)
     Route: 048
     Dates: start: 20191115

REACTIONS (6)
  - Hordeolum [Recovering/Resolving]
  - Platelet count increased [Recovering/Resolving]
  - Product prescribing error [Unknown]
  - Thrombosis [Unknown]
  - Platelet count decreased [Recovering/Resolving]
  - Wrong technique in product usage process [Unknown]

NARRATIVE: CASE EVENT DATE: 202001
